FAERS Safety Report 22367216 (Version 2)
Quarter: 2023Q2

REPORT INFORMATION
  Report Type: Spontaneous
  Country: DE (occurrence: DE)
  Receive Date: 20230525
  Receipt Date: 20230615
  Transmission Date: 20230721
  Serious: Yes (Hospitalization, Congenital Anomaly, Other)
  Sender: FDA-Public Use
  Company Number: None

PATIENT
  Sex: Male
  Weight: 2.56 kg

DRUGS (4)
  1. LEVETIRACETAM [Suspect]
     Active Substance: LEVETIRACETAM
     Indication: Epilepsy
     Dosage: 3000MG/D-INITIAL 2X750MG DAILY,INCREASED 2X1500MG
     Route: 064
     Dates: start: 20220203, end: 20221008
  2. AMOXICILLIN [Concomitant]
     Active Substance: AMOXICILLIN
     Indication: Infection prophylaxis
     Dosage: 1000 MILLIGRAM, BID,(2000 [MG/D (2X1000)])
     Route: 064
  3. LEVOTHYROXINE SODIUM [Concomitant]
     Active Substance: LEVOTHYROXINE SODIUM
     Indication: Hypothyroidism
     Dosage: 50 MICROGRAM, QD
     Route: 064
     Dates: start: 20220203, end: 20221008
  4. Femibion [Concomitant]
     Indication: Prophylaxis of neural tube defect
     Dosage: UNK
     Route: 064
     Dates: start: 20220203, end: 20220912

REACTIONS (6)
  - Urethral atresia [Not Recovered/Not Resolved]
  - Vesicoureteric reflux [Not Recovered/Not Resolved]
  - Foetal megacystis [Recovered/Resolved]
  - Pericardial effusion [Unknown]
  - Cardiac hypertrophy [Unknown]
  - Foetal exposure during pregnancy [Unknown]

NARRATIVE: CASE EVENT DATE: 20230526
